FAERS Safety Report 9119933 (Version 1)
Quarter: 2013Q1

REPORT INFORMATION
  Report Type: Spontaneous
  Country: DE (occurrence: None)
  Receive Date: 20130130
  Receipt Date: 20130130
  Transmission Date: 20140127
  Serious: Yes (Other)
  Sender: FDA-Public Use
  Company Number: 2013-00786

PATIENT
  Age: 64 Year
  Sex: Female

DRUGS (1)
  1. RAMIPRIL (UNKNOWN) (RAMIPRIL) UNK, UNK UNK [Suspect]
     Indication: HYPERTENSION
     Dosage: ^2.5 MG  MILLIGRAMS(S) EVERY DAYS^ {2.5 MG MILLIGRAM(S), 1 IN 1 DAY}, UNKNOWN?04/04/2012  TO  UNK
     Dates: start: 20120404

REACTIONS (2)
  - Amaurosis fugax [None]
  - Diplopia [None]
